FAERS Safety Report 23660983 (Version 2)
Quarter: 2024Q2

REPORT INFORMATION
  Report Type: Spontaneous
  Country: CN (occurrence: CN)
  Receive Date: 20240322
  Receipt Date: 20240401
  Transmission Date: 20240716
  Serious: Yes (Hospitalization, Other)
  Sender: FDA-Public Use
  Company Number: CN-ABBVIE-5686617

PATIENT
  Age: 49 Year
  Sex: Male

DRUGS (2)
  1. OZURDEX [Suspect]
     Active Substance: DEXAMETHASONE
     Indication: Retinal vein occlusion
     Route: 050
  2. OZURDEX [Suspect]
     Active Substance: DEXAMETHASONE
     Indication: Macular oedema

REACTIONS (2)
  - Endophthalmitis [Recovering/Resolving]
  - Cataract [Unknown]
